FAERS Safety Report 20844957 (Version 1)
Quarter: 2022Q2

REPORT INFORMATION
  Report Type: Spontaneous
  Country: CN (occurrence: None)
  Receive Date: 20220518
  Receipt Date: 20220518
  Transmission Date: 20220721
  Serious: Yes (Other)
  Sender: FDA-Public Use
  Company Number: CN-ROCHE-3094456

PATIENT
  Age: 80 Year
  Sex: Male

DRUGS (8)
  1. ATEZOLIZUMAB [Suspect]
     Active Substance: ATEZOLIZUMAB
     Indication: Hepatic cancer recurrent
     Dosage: 24-FEB-2021, 17-MAR-2021, 07-APR-2021, 29-APR-2021
     Route: 041
     Dates: start: 20210203
  2. ATEZOLIZUMAB [Suspect]
     Active Substance: ATEZOLIZUMAB
     Indication: Metastases to liver
     Dosage: 27-JAN-2022
     Route: 041
     Dates: start: 20210831
  3. ATEZOLIZUMAB [Suspect]
     Active Substance: ATEZOLIZUMAB
     Indication: Metastases to abdominal cavity
     Route: 041
     Dates: start: 20220505
  4. BEVACIZUMAB [Suspect]
     Active Substance: BEVACIZUMAB
     Indication: Hepatic cancer recurrent
     Dosage: 24-FEB-2021, 17-MAR-2021, 07-APR-2021, 29-APR-2021
     Route: 065
     Dates: start: 20210203
  5. BEVACIZUMAB [Suspect]
     Active Substance: BEVACIZUMAB
     Indication: Metastases to liver
     Dosage: 27-JAN-2022
     Route: 065
     Dates: start: 20210831
  6. BEVACIZUMAB [Suspect]
     Active Substance: BEVACIZUMAB
     Indication: Metastases to abdominal cavity
     Route: 065
     Dates: start: 20220505
  7. TENOFOVIR ALAFENAMIDE [Concomitant]
     Active Substance: TENOFOVIR ALAFENAMIDE
  8. TENOFOVIR DISOPROXIL FUMARATE [Concomitant]
     Active Substance: TENOFOVIR DISOPROXIL FUMARATE

REACTIONS (10)
  - Decreased appetite [Unknown]
  - Asthenia [Unknown]
  - Pruritus [Unknown]
  - Chromaturia [Unknown]
  - Ocular icterus [Unknown]
  - Yellow skin [Unknown]
  - Liver injury [Recovered/Resolved]
  - Renal injury [Unknown]
  - Blood disorder [Unknown]
  - Hepatitis B DNA increased [Recovered/Resolved]

NARRATIVE: CASE EVENT DATE: 20210507
